FAERS Safety Report 7429624-4 (Version None)
Quarter: 2011Q2

REPORT INFORMATION
  Report Type: 
  Country: None (occurrence: None)
  Receive Date: 20110421
  Receipt Date: 20110414
  Transmission Date: 20111010
  Serious: Yes (Other)
  Sender: FDA-Public Use
  Company Number: B0714052A

PATIENT
  Sex: Female

DRUGS (1)
  1. PAXIL [Suspect]
     Indication: PANIC DISORDER
     Route: 048

REACTIONS (6)
  - AGGRESSION [None]
  - HALLUCINATION, AUDITORY [None]
  - DYSAESTHESIA [None]
  - DRUG WITHDRAWAL SYNDROME [None]
  - MANIA [None]
  - DYSKINESIA [None]
